FAERS Safety Report 24526757 (Version 1)
Quarter: 2024Q4

REPORT INFORMATION
  Report Type: Report from Study
  Country: CN (occurrence: CN)
  Receive Date: 20241021
  Receipt Date: 20241021
  Transmission Date: 20250115
  Serious: No
  Sender: ROCHE
  Company Number: CN-ROCHE-3498495

PATIENT

DRUGS (5)
  1. VEMURAFENIB [Suspect]
     Active Substance: VEMURAFENIB
     Indication: Langerhans^ cell histiocytosis
     Dosage: FOR 1 YEAR.
     Route: 048
  2. VINCRISTINE [Suspect]
     Active Substance: VINCRISTINE
     Indication: Langerhans^ cell histiocytosis
     Route: 065
  3. PREDNISONE [Suspect]
     Active Substance: PREDNISONE
     Indication: Langerhans^ cell histiocytosis
     Dosage: FOR FOUR WEEKS, TAPERING OFF OVER THE SUBSEQUENT 2 WEEKS) FOR A TOTAL OF 6 WEEKS.
     Route: 048
  4. PREDNISONE [Suspect]
     Active Substance: PREDNISONE
     Dosage: 3 DAYS OF ORAL PREDNISONE (40 MG/M^2/DAY) EVERY WEEK FOR A TOTAL OF 6 WEEKS.
     Route: 048
  5. MERCAPTOPURINE [Suspect]
     Active Substance: MERCAPTOPURINE
     Indication: Langerhans^ cell histiocytosis
     Route: 065

REACTIONS (5)
  - Rash [Unknown]
  - Cholangitis [Unknown]
  - Pruritus [Unknown]
  - Arthritis [Unknown]
  - Hepatic function abnormal [Unknown]
